FAERS Safety Report 12894996 (Version 5)
Quarter: 2021Q1

REPORT INFORMATION
  Report Type: Report from Study
  Country: US (occurrence: US)
  Receive Date: 20161029
  Receipt Date: 20210122
  Transmission Date: 20210419
  Serious: Yes (Other)
  Sender: FDA-Public Use
  Company Number: US-ASTRAZENECA-2016SF11961

PATIENT
  Age: 724 Month
  Sex: Female
  Weight: 68 kg

DRUGS (4)
  1. CRESTOR [Suspect]
     Active Substance: ROSUVASTATIN CALCIUM
     Indication: BLOOD CHOLESTEROL INCREASED
     Route: 048
     Dates: start: 2012
  2. CRESTOR [Suspect]
     Active Substance: ROSUVASTATIN CALCIUM
     Indication: BLOOD CHOLESTEROL INCREASED
     Dosage: 40 MG DAILY GENERIC UNKNOWN
     Route: 065
     Dates: start: 2016
  3. CRESTOR [Suspect]
     Active Substance: ROSUVASTATIN CALCIUM
     Indication: BLOOD CHOLESTEROL INCREASED
     Dosage: UNKNOWN
     Route: 048
  4. CRESTOR [Suspect]
     Active Substance: ROSUVASTATIN CALCIUM
     Indication: BLOOD CHOLESTEROL INCREASED
     Dosage: 40.0MG UNKNOWN
     Route: 048
     Dates: start: 201609, end: 201609

REACTIONS (7)
  - Back pain [Unknown]
  - Muscular weakness [Unknown]
  - Pain [Unknown]
  - Product dose omission issue [Recovered/Resolved]
  - Pain in extremity [Unknown]
  - Breast cancer female [Unknown]
  - Product substitution issue [Unknown]

NARRATIVE: CASE EVENT DATE: 201510
